FAERS Safety Report 8054960-0 (Version None)
Quarter: 2012Q1

REPORT INFORMATION
  Report Type: 
  Country: None (occurrence: None)
  Receive Date: 20120119
  Receipt Date: 20120116
  Transmission Date: 20120608
  Serious: Yes (Other)
  Sender: FDA-Public Use
  Company Number: JP-PFIZER INC-2011280043

PATIENT
  Age: 78 Year
  Sex: Male

DRUGS (1)
  1. TEMSIROLIMUS [Suspect]
     Route: 042

REACTIONS (1)
  - LUNG DISORDER [None]
